FAERS Safety Report 16984531 (Version 1)
Quarter: 2019Q4

REPORT INFORMATION
  Report Type: Spontaneous
  Country: US (occurrence: US)
  Receive Date: 20190917
  Receipt Date: 20190917
  Transmission Date: 20200122
  Serious: No
  Sender: FDA-Public Use
  Company Number: None

PATIENT
  Age: 68 Year

DRUGS (1)
  1. REPATHA [Suspect]
     Active Substance: EVOLOCUMAB
     Route: 058
     Dates: start: 201908

REACTIONS (4)
  - Hypoglycaemia [None]
  - Hepatic enzyme increased [None]
  - Injection site pain [None]
  - Nasopharyngitis [None]

NARRATIVE: CASE EVENT DATE: 20190917
